FAERS Safety Report 5763931-6 (Version None)
Quarter: 2008Q2

REPORT INFORMATION
  Report Type: 
  Country: None (occurrence: None)
  Receive Date: 20080606
  Receipt Date: 20080606
  Transmission Date: 20081010
  Serious: Yes (Other)
  Sender: FDA-Public Use
  Company Number: None

PATIENT
  Sex: Female
  Weight: 47.6277 kg

DRUGS (1)
  1. YAZ [Suspect]
     Indication: ACNE
     Dosage: 28 DAILY PO
     Route: 048

REACTIONS (3)
  - BREAST NEOPLASM [None]
  - FATIGUE [None]
  - GASTROINTESTINAL DISORDER [None]
